FAERS Safety Report 8301013-X (Version None)
Quarter: 2012Q2

REPORT INFORMATION
  Report Type: 
  Country: None (occurrence: None)
  Receive Date: 20120420
  Receipt Date: 20120413
  Transmission Date: 20120825
  Serious: Yes (Hospitalization, Congenital Anomaly)
  Sender: FDA-Public Use
  Company Number: ES-AMGEN-ESPSP2011063729

PATIENT
  Sex: Male

DRUGS (4)
  1. IODINE [Concomitant]
     Dosage: 200 MG, QD
     Route: 064
     Dates: start: 20101117, end: 20110627
  2. CINACALCET HYDROCHLORIDE [Suspect]
     Dosage: 15 MG, QD
     Route: 064
     Dates: start: 20101105, end: 20101123
  3. FOLIC ACID [Concomitant]
     Dosage: 5 MG, QD
     Route: 064
     Dates: start: 20100329, end: 20101105
  4. CINACALCET HYDROCHLORIDE [Suspect]
     Dosage: 30 MG, QD
     Route: 064
     Dates: start: 20100329, end: 20101105

REACTIONS (3)
  - INGUINAL HERNIA [None]
  - PREMATURE DELIVERY [None]
  - FOETAL EXPOSURE DURING PREGNANCY [None]
